FAERS Safety Report 11381701 (Version 2)
Quarter: 2015Q3

REPORT INFORMATION
  Report Type: Report from Study
  Country: HT (occurrence: HT)
  Receive Date: 20150814
  Receipt Date: 20150828
  Transmission Date: 20151125
  Serious: Yes (Death)
  Sender: FDA-Public Use
  Company Number: HT-ABBVIE-15P-073-1443531-00

PATIENT
  Age: 0 Year

DRUGS (2)
  1. TRUVADA [Concomitant]
     Active Substance: EMTRICITABINE\TENOFOVIR DISOPROXIL FUMARATE
     Indication: MATERNAL EXPOSURE TIMING UNSPECIFIED
     Route: 064
     Dates: start: 20120524
  2. KALETRA [Suspect]
     Active Substance: LOPINAVIR\RITONAVIR
     Indication: MATERNAL EXPOSURE TIMING UNSPECIFIED
     Route: 064
     Dates: start: 20120524

REACTIONS (3)
  - Foetal exposure during pregnancy [Unknown]
  - Sepsis [Fatal]
  - Live birth [Recovered/Resolved]

NARRATIVE: CASE EVENT DATE: 20150726
